FAERS Safety Report 5627518-8 (Version None)
Quarter: 2008Q1

REPORT INFORMATION
  Report Type: 
  Country: None (occurrence: None)
  Receive Date: 20080215
  Receipt Date: 20071106
  Transmission Date: 20080703
  Serious: No
  Sender: FDA-Public Use
  Company Number: A0691742A

PATIENT
  Age: 78 Year
  Sex: Female

DRUGS (3)
  1. COREG CR [Suspect]
     Dosage: 20MG PER DAY
     Route: 048
  2. ATACAND [Concomitant]
  3. FOSAMAX [Concomitant]

REACTIONS (1)
  - DIZZINESS [None]
